FAERS Safety Report 7371068-8 (Version None)
Quarter: 2011Q1

REPORT INFORMATION
  Report Type: 
  Country: None (occurrence: None)
  Receive Date: 20110225
  Receipt Date: 20110120
  Transmission Date: 20110831
  Serious: No
  Sender: FDA-Public Use
  Company Number: 322194

PATIENT
  Age: 66 Year
  Sex: Female

DRUGS (3)
  1. METAMUCIL /00029101/ (PLANTAGO OVATA) [Concomitant]
  2. COLACE (DOCUSATE SODIUM) [Concomitant]
  3. VICTOZA [Suspect]
     Indication: TYPE 2 DIABETES MELLITUS
     Dosage: 1.2 MG, QD, SUBCUTANEOUS, 0.6 MG, QD, SUBCUTANEOUS
     Route: 058
     Dates: end: 20100101

REACTIONS (5)
  - EYE PAIN [None]
  - INFLUENZA LIKE ILLNESS [None]
  - NAUSEA [None]
  - CONSTIPATION [None]
  - DECREASED APPETITE [None]
